FAERS Safety Report 7392264-X (Version None)
Quarter: 2011Q2

REPORT INFORMATION
  Report Type: 
  Country: None (occurrence: None)
  Receive Date: 20110404
  Receipt Date: 20110324
  Transmission Date: 20111010
  Serious: Yes (Other)
  Sender: FDA-Public Use
  Company Number: DE-BRISTOL-MYERS SQUIBB COMPANY-15649502

PATIENT

DRUGS (1)
  1. MITOTANE [Suspect]

REACTIONS (1)
  - NEUTROPENIA [None]
